FAERS Safety Report 16151662 (Version 2)
Quarter: 2019Q2

REPORT INFORMATION
  Report Type: Spontaneous
  Country: AU (occurrence: AU)
  Receive Date: 20190403
  Receipt Date: 20190408
  Transmission Date: 20190711
  Serious: Yes (Hospitalization, Other)
  Sender: FDA-Public Use
  Company Number: AU-JNJFOC-20190340406

PATIENT
  Age: 37 Year
  Sex: Male

DRUGS (2)
  1. VALPROATE SODIUM. [Suspect]
     Active Substance: VALPROATE SODIUM
     Indication: PRODUCT USED FOR UNKNOWN INDICATION
     Route: 065
  2. INVEGA SUSTENNA [Suspect]
     Active Substance: PALIPERIDONE PALMITATE
     Indication: SCHIZOPHRENIA
     Route: 030
     Dates: start: 201808

REACTIONS (4)
  - Pulmonary haemorrhage [Unknown]
  - Liver function test increased [Recovering/Resolving]
  - Pallor [Unknown]
  - Fall [Unknown]

NARRATIVE: CASE EVENT DATE: 201901
